FAERS Safety Report 9991562 (Version 1)
Quarter: 2014Q1

REPORT INFORMATION
  Report Type: Spontaneous
  Country: JP (occurrence: JP)
  Receive Date: 20140310
  Receipt Date: 20140310
  Transmission Date: 20141002
  Serious: Yes (Death)
  Sender: FDA-Public Use
  Company Number: JP-MYLANLABS-2014S1004427

PATIENT
  Age: 3 Decade
  Sex: Male
  Weight: 63.5 kg

DRUGS (9)
  1. OLANZAPINE [Suspect]
     Indication: SCHIZOPHRENIA
     Dosage: BEFORE BEDTIME
     Route: 048
  2. OLANZAPINE [Suspect]
     Indication: SCHIZOPHRENIA
     Dosage: BEFORE BEDTIME
     Route: 048
  3. HALOPERIDOL [Concomitant]
     Indication: SCHIZOPHRENIA
     Route: 030
  4. RISPERDAL [Concomitant]
     Indication: SCHIZOPHRENIA
     Dosage: 2 MG/DOSE
     Route: 065
  5. FLUNITRAZEPAM [Concomitant]
     Indication: INSOMNIA
     Dosage: 1 MG/DOSE AS NEEDED
     Route: 065
  6. SENNA [Concomitant]
     Indication: CONSTIPATION
     Dosage: SENNOSIDES       12 MG/DOSE AS NEEDED
     Route: 065
  7. ABILIFY [Concomitant]
     Indication: SCHIZOPHRENIA
     Dosage: 12 MG/DAY
     Route: 048
  8. NITRAZEPAM [Concomitant]
     Route: 065
  9. LOXOPROFEN [Concomitant]
     Route: 065

REACTIONS (5)
  - Water intoxication [Fatal]
  - Hyponatraemia [Fatal]
  - Abdominal distension [Unknown]
  - Vomiting [Unknown]
  - Syncope [Unknown]
